FAERS Safety Report 10503975 (Version 2)
Quarter: 2014Q4

REPORT INFORMATION
  Report Type: Spontaneous
  Country: US (occurrence: US)
  Receive Date: 20141008
  Receipt Date: 20141008
  Transmission Date: 20150528
  Serious: No
  Sender: FDA-Public Use
  Company Number: US-BEH-2013034558

PATIENT
  Age: 53 Year
  Sex: Female
  Weight: 76 kg

DRUGS (28)
  1. DIPHENHYDRAMINE [Concomitant]
     Active Substance: DIPHENHYDRAMINE
  2. SOLU-MEDROL [Concomitant]
     Active Substance: METHYLPREDNISOLONE SODIUM SUCCINATE
  3. FLUTICASONE [Concomitant]
     Active Substance: FLUTICASONE\FLUTICASONE PROPIONATE
  4. TOPIRAMATE. [Concomitant]
     Active Substance: TOPIRAMATE
  5. PRIVIGEN [Suspect]
     Active Substance: HUMAN IMMUNOGLOBULIN G
     Route: 042
  6. PRIVIGEN [Suspect]
     Active Substance: HUMAN IMMUNOGLOBULIN G
     Route: 042
  7. PRIVIGEN [Suspect]
     Active Substance: HUMAN IMMUNOGLOBULIN G
     Route: 042
  8. PRIVIGEN [Suspect]
     Active Substance: HUMAN IMMUNOGLOBULIN G
     Route: 042
  9. NORMAL SALINE [Concomitant]
     Active Substance: SODIUM CHLORIDE
  10. ESTRADIOL. [Concomitant]
     Active Substance: ESTRADIOL
  11. SEROQUEL [Concomitant]
     Active Substance: QUETIAPINE FUMARATE
  12. DEXMETHYLPHENIDATE [Concomitant]
     Active Substance: DEXMETHYLPHENIDATE HYDROCHLORIDE
  13. SINGULAIR [Concomitant]
     Active Substance: MONTELUKAST SODIUM
  14. HEPARIN [Concomitant]
     Active Substance: HEPARIN SODIUM
  15. LEXAPRO [Concomitant]
     Active Substance: ESCITALOPRAM OXALATE
  16. DEPO-TESTADOIL [Concomitant]
  17. PHENTERMINE [Concomitant]
     Active Substance: PHENTERMINE
  18. LEVAQUIN [Concomitant]
     Active Substance: LEVOFLOXACIN
  19. AMOXICILLIN. [Concomitant]
     Active Substance: AMOXICILLIN
  20. SODIUM CHLORIDE. [Concomitant]
     Active Substance: SODIUM CHLORIDE
  21. EPIPEN [Concomitant]
     Active Substance: EPINEPHRINE
  22. MIACALCIN [Concomitant]
     Active Substance: CALCITONIN SALMON
  23. AZELASTINE [Concomitant]
     Active Substance: AZELASTINE
  24. PRIVIGEN [Suspect]
     Active Substance: HUMAN IMMUNOGLOBULIN G
     Indication: HODGKIN^S DISEASE
     Dosage: OVER 2-3 HRS PER MANUFACTURER^S GUIDELINES AND ADJUST RATES PER PATIENT TOLERANCE
     Route: 042
     Dates: start: 20121217, end: 20121217
  25. XANAX [Concomitant]
     Active Substance: ALPRAZOLAM
  26. PRIVIGEN [Suspect]
     Active Substance: HUMAN IMMUNOGLOBULIN G
     Dosage: OVER 2-3 HRS PER MANUFACTURER^S GUIDELINES AND ADJUST RATES PER PATIENT TOLERANCE
     Route: 042
     Dates: start: 20121217, end: 20121217
  27. L-M-X [Concomitant]
  28. IMIPRAMINE [Concomitant]
     Active Substance: IMIPRAMINE

REACTIONS (8)
  - Nausea [Unknown]
  - Device occlusion [Unknown]
  - Headache [Unknown]
  - Upper respiratory tract infection [Unknown]
  - Nausea [Unknown]
  - Vomiting [Unknown]
  - Headache [Unknown]
  - Vomiting [Unknown]

NARRATIVE: CASE EVENT DATE: 20121217
